FAERS Safety Report 11101487 (Version 3)
Quarter: 2017Q2

REPORT INFORMATION
  Report Type: Spontaneous
  Country: US (occurrence: US)
  Receive Date: 20150508
  Receipt Date: 20170404
  Transmission Date: 20170829
  Serious: Yes (Hospitalization, Disabling, Other)
  Sender: FDA-Public Use
  Company Number: US-B.I. PHARMACEUTICALS,INC./RIDGEFIELD-2015-BI-24229BP

PATIENT
  Age: 57 Year
  Sex: Female
  Weight: 73.48 kg

DRUGS (4)
  1. PRADAXA [Suspect]
     Active Substance: DABIGATRAN ETEXILATE MESYLATE
     Indication: THROMBOSIS
     Route: 065
     Dates: start: 201011, end: 201411
  2. PRADAXA [Suspect]
     Active Substance: DABIGATRAN ETEXILATE MESYLATE
     Indication: FACTOR V LEIDEN MUTATION
     Route: 048
     Dates: start: 201010, end: 20141011
  3. DITROPAN [Concomitant]
     Active Substance: OXYBUTYNIN CHLORIDE
     Indication: URINARY INCONTINENCE
     Route: 048
     Dates: start: 1999
  4. BENICAR [Concomitant]
     Active Substance: OLMESARTAN MEDOXOMIL
     Indication: HYPERTENSION
     Route: 048

REACTIONS (6)
  - Visual field defect [Not Recovered/Not Resolved]
  - Cerebrovascular accident [Unknown]
  - Headache [Not Recovered/Not Resolved]
  - Off label use [Unknown]
  - Cerebrovascular accident [Recovered/Resolved with Sequelae]
  - Road traffic accident [Recovered/Resolved]

NARRATIVE: CASE EVENT DATE: 201010
